FAERS Safety Report 9827253 (Version 1)
Quarter: 2014Q1

REPORT INFORMATION
  Report Type: Spontaneous
  Country: US (occurrence: US)
  Receive Date: 20140117
  Receipt Date: 20140117
  Transmission Date: 20141002
  Serious: No
  Sender: FDA-Public Use
  Company Number: US-GLAXOSMITHKLINE-A1048854A

PATIENT
  Sex: Male

DRUGS (4)
  1. GABAPENTIN [Concomitant]
  2. BABY ASPIRIN [Concomitant]
  3. COUMADIN [Concomitant]
  4. PROMACTA [Suspect]
     Indication: IMMUNE THROMBOCYTOPENIC PURPURA
     Dosage: 50MG PER DAY
     Route: 048
     Dates: start: 20131024

REACTIONS (2)
  - Platelet count increased [Unknown]
  - Erythromelalgia [Unknown]
